FAERS Safety Report 11816471 (Version 1)
Quarter: 2015Q4

REPORT INFORMATION
  Report Type: Report from Study
  Country: DE (occurrence: DE)
  Receive Date: 20151209
  Receipt Date: 20151209
  Transmission Date: 20160305
  Serious: Yes (Hospitalization, Disabling)
  Sender: FDA-Public Use
  Company Number: DE-ROCHE-ITM201208IM002762

PATIENT
  Age: 75 Year
  Sex: Male
  Weight: 93 kg

DRUGS (9)
  1. ACETYLCYSTEINE. [Concomitant]
     Active Substance: ACETYLCYSTEINE
     Indication: IDIOPATHIC PULMONARY FIBROSIS
     Dosage: 1200 MG
     Route: 065
     Dates: start: 201109, end: 201202
  2. PREDNISOLON [Concomitant]
     Active Substance: PREDNISOLONE
     Indication: IDIOPATHIC PULMONARY FIBROSIS
     Route: 065
     Dates: start: 201108, end: 201204
  3. VESIKUR [Concomitant]
     Active Substance: SOLIFENACIN SUCCINATE
     Indication: URGE INCONTINENCE
     Route: 065
     Dates: start: 2000
  4. OMEP [Concomitant]
     Active Substance: OMEPRAZOLE
     Indication: GASTROOESOPHAGEAL REFLUX DISEASE
     Route: 065
     Dates: start: 2000, end: 20120523
  5. PIRFENIDONE [Suspect]
     Active Substance: PIRFENIDONE
     Route: 048
     Dates: start: 20130829
  6. ZANTAC [Concomitant]
     Active Substance: RANITIDINE HYDROCHLORIDE
     Indication: IDIOPATHIC PULMONARY FIBROSIS
     Route: 065
     Dates: start: 201109, end: 201202
  7. PIRFENIDONE [Suspect]
     Active Substance: PIRFENIDONE
     Indication: IDIOPATHIC PULMONARY FIBROSIS
     Route: 048
     Dates: start: 20120503, end: 20130731
  8. DOCITON [Concomitant]
     Active Substance: PROPRANOLOL HYDROCHLORIDE
     Indication: HYPERTENSION
     Route: 065
     Dates: start: 2005
  9. PANTOZOL [Concomitant]
     Active Substance: PANTOPRAZOLE SODIUM
     Indication: GASTROOESOPHAGEAL REFLUX DISEASE
     Route: 065
     Dates: start: 20120524

REACTIONS (7)
  - Decreased appetite [Not Recovered/Not Resolved]
  - Tinnitus [Recovered/Resolved]
  - Cough [Not Recovered/Not Resolved]
  - Fatigue [Not Recovered/Not Resolved]
  - Rash [Recovered/Resolved]
  - Pain in extremity [Recovered/Resolved]
  - Bronchitis bacterial [Recovered/Resolved]

NARRATIVE: CASE EVENT DATE: 20120525
